FAERS Safety Report 6885298-2 (Version None)
Quarter: 2010Q3

REPORT INFORMATION
  Report Type: 
  Country: None (occurrence: None)
  Receive Date: 20100729
  Receipt Date: 20100729
  Transmission Date: 20110219
  Serious: Yes (Other)
  Sender: FDA-Public Use
  Company Number: None

PATIENT
  Age: 53 Year
  Sex: Female
  Weight: 90 kg

DRUGS (3)
  1. BUSPIRONE HCL [Suspect]
     Indication: ANXIETY
     Dosage: 2.5 TAB BID PO
     Route: 048
     Dates: start: 20100330
  2. BUSPIRONE HCL [Suspect]
     Indication: DEPRESSION
     Dosage: 2.5 TAB BID PO
     Route: 048
     Dates: start: 20100330
  3. IMATINIB [Suspect]
     Indication: GASTROINTESTINAL STROMAL TUMOUR
     Dosage: 1 TAB EVERY DAY PO
     Route: 048
     Dates: start: 20100326, end: 20100529

REACTIONS (4)
  - ABNORMAL DREAMS [None]
  - NIGHTMARE [None]
  - OSTEOARTHRITIS [None]
  - PANIC DISORDER [None]
